FAERS Safety Report 20005576 (Version 1)
Quarter: 2021Q4

REPORT INFORMATION
  Report Type: Report from Study
  Country: PH (occurrence: PH)
  Receive Date: 20211027
  Receipt Date: 20211027
  Transmission Date: 20220303
  Serious: Yes (Hospitalization)
  Sender: FDA-Public Use
  Company Number: 2021A783727

PATIENT
  Age: 716 Month
  Sex: Female

DRUGS (1)
  1. FASLODEX [Suspect]
     Active Substance: FULVESTRANT
     Indication: Breast cancer female
     Dosage: 250.0MG UNKNOWN
     Route: 030
     Dates: start: 2020

REACTIONS (3)
  - Dysuria [Unknown]
  - Blood creatine increased [Unknown]
  - Kidney infection [Unknown]

NARRATIVE: CASE EVENT DATE: 20211001
